FAERS Safety Report 6520329-0 (Version None)
Quarter: 2009Q4

REPORT INFORMATION
  Report Type: 
  Country: None (occurrence: None)
  Receive Date: 20091229
  Receipt Date: 20091215
  Transmission Date: 20100525
  Serious: Yes (Death, Life-Threatening, Hospitalization)
  Sender: FDA-Public Use
  Company Number: DE-AMGEN-UK378121

PATIENT
  Age: 51 Year

DRUGS (4)
  1. NEULASTA [Suspect]
     Indication: CHEMOTHERAPY
  2. DOCETAXEL [Suspect]
     Route: 041
     Dates: start: 20091113
  3. EPIRUBICIN [Suspect]
     Route: 041
     Dates: start: 20091113
  4. CYCLOPHOSPHAMIDE [Suspect]
     Route: 041
     Dates: start: 20091113

REACTIONS (3)
  - NEUTROPENIA [None]
  - PNEUMONIA [None]
  - SEPSIS [None]
